FAERS Safety Report 5687563-3 (Version None)
Quarter: 2008Q1

REPORT INFORMATION
  Report Type: 
  Country: None (occurrence: None)
  Receive Date: 20080328
  Receipt Date: 20080324
  Transmission Date: 20080703
  Serious: Yes (Other)
  Sender: FDA-Public Use
  Company Number: US-BAYER-200713197BCC

PATIENT
  Sex: Female
  Weight: 70 kg

DRUGS (4)
  1. PHILLIPS MILK OF MAGNESIA ORIGINAL LIQUID [Suspect]
     Indication: CONSTIPATION
     Dosage: UNIT DOSE: 15 ML
     Route: 048
     Dates: start: 20070101, end: 20070901
  2. ATENOLOL [Concomitant]
  3. LISINOPRIL [Concomitant]
  4. NORVASC [Concomitant]

REACTIONS (3)
  - BLOOD PRESSURE INCREASED [None]
  - DIZZINESS [None]
  - VERTIGO [None]
